FAERS Safety Report 19696180 (Version 1)
Quarter: 2021Q3

REPORT INFORMATION
  Report Type: Spontaneous
  Country: US (occurrence: US)
  Receive Date: 20210813
  Receipt Date: 20210813
  Transmission Date: 20211014
  Serious: Yes (Other)
  Sender: FDA-Public Use
  Company Number: US-GLAXOSMITHKLINE-US2021GSK169688

PATIENT
  Sex: Male

DRUGS (4)
  1. ZANTAC [Suspect]
     Active Substance: RANITIDINE HYDROCHLORIDE
     Indication: GASTRIC HAEMORRHAGE
     Dosage: UNK UNK, QD
     Route: 065
     Dates: start: 200701, end: 200901
  2. RANITIDINE CAPSULE [Suspect]
     Active Substance: RANITIDINE
     Indication: GASTRIC HAEMORRHAGE
     Dosage: UNK, QD
     Route: 065
     Dates: start: 200701, end: 200901
  3. RANITIDINE. [Suspect]
     Active Substance: RANITIDINE
     Indication: GASTRIC HAEMORRHAGE
     Dosage: UNK, QD
     Route: 065
     Dates: start: 200701, end: 200901
  4. ZANTAC [Suspect]
     Active Substance: RANITIDINE HYDROCHLORIDE
     Indication: GASTRIC HAEMORRHAGE
     Dosage: UNK UNK, QD
     Route: 065
     Dates: start: 200701, end: 200901

REACTIONS (1)
  - Prostate cancer [Unknown]
